FAERS Safety Report 5136367-9 (Version None)
Quarter: 2006Q4

REPORT INFORMATION
  Report Type: 
  Country: None (occurrence: None)
  Receive Date: 20061027
  Receipt Date: 20051005
  Transmission Date: 20070319
  Serious: Yes (Death, Life-Threatening)
  Sender: FDA-Public Use
  Company Number: IE-NOVOPROD-247563

PATIENT
  Age: 72 Year
  Sex: Male
  Weight: 68 kg

DRUGS (13)
  1. LEVEMIR [Suspect]
     Indication: DIABETES MELLITUS
     Dosage: 20 IU, QD
     Route: 058
     Dates: start: 20050616
  2. DEXAMETHASONE [Concomitant]
     Dosage: 4 MG, QD
     Route: 048
     Dates: start: 20050617, end: 20050725
  3. THYROXIN [Concomitant]
     Dosage: 100 UG, QD
     Route: 048
     Dates: start: 20050513, end: 20050727
  4. LANSOPRAZOLE [Concomitant]
     Dosage: 30 MG, QD
     Route: 048
     Dates: start: 20050528, end: 20050725
  5. CORDARONE [Concomitant]
     Dosage: 100 MG, QD
     Route: 048
     Dates: start: 20050513, end: 20050725
  6. FUROSEMIDE [Concomitant]
     Dosage: 40 MG, QD
     Route: 048
     Dates: start: 20050613, end: 20050725
  7. SPIRONOLACTONE [Concomitant]
     Dosage: 25 MG, QD
     Route: 048
     Dates: start: 20050613, end: 20050725
  8. DIGOXIN [Concomitant]
     Dates: start: 20050528, end: 20050725
  9. PRAVASTATIN [Concomitant]
     Dates: start: 20050624, end: 20050725
  10. METFORMIN HCL [Concomitant]
     Dates: start: 20050618, end: 20050725
  11. LEVOBUNOLOL [Concomitant]
     Route: 061
     Dates: start: 20050621, end: 20050725
  12. BRINZOLAMIDE [Concomitant]
     Dosage: UNK, UNK
     Route: 061
     Dates: start: 20050616, end: 20050725
  13. NEORECORMON ^BOEHRINGER MANNHEIM^ [Concomitant]
     Dosage: 30000 UNK, QD
     Route: 058
     Dates: start: 20050713, end: 20050725

REACTIONS (2)
  - METASTASES TO BONE [None]
  - PROSTATE CANCER [None]
